FAERS Safety Report 8198916-6 (Version None)
Quarter: 2012Q1

REPORT INFORMATION
  Report Type: 
  Country: None (occurrence: None)
  Receive Date: 20120309
  Receipt Date: 20120229
  Transmission Date: 20120608
  Serious: Yes (Hospitalization, Disabling)
  Sender: FDA-Public Use
  Company Number: NO-SANOFI-AVENTIS-2012SA014278

PATIENT
  Age: 56 Year
  Sex: Female
  Weight: 80 kg

DRUGS (7)
  1. TAXOTERE [Suspect]
     Route: 042
     Dates: start: 20070322
  2. TAXOTERE [Suspect]
     Route: 042
     Dates: start: 20070614
  3. TAMOXIFEN CITRATE [Concomitant]
     Dates: start: 20060601
  4. TAXOTERE [Suspect]
     Route: 042
     Dates: start: 20070412
  5. TAXOTERE [Suspect]
     Route: 042
     Dates: start: 20070503
  6. TAXOTERE [Suspect]
     Route: 042
     Dates: start: 20070524
  7. TAXOTERE [Suspect]
     Route: 042
     Dates: end: 20070705

REACTIONS (22)
  - PYREXIA [None]
  - BONE PAIN [None]
  - HYPOAESTHESIA [None]
  - WEIGHT DECREASED [None]
  - TONGUE DISCOLOURATION [None]
  - BALANCE DISORDER [None]
  - OROPHARYNGEAL PAIN [None]
  - PAIN IN EXTREMITY [None]
  - GENERAL PHYSICAL HEALTH DETERIORATION [None]
  - GENITAL RASH [None]
  - LACRIMATION INCREASED [None]
  - FEBRILE NEUTROPENIA [None]
  - FUNGAL INFECTION [None]
  - ALOPECIA [None]
  - MYALGIA [None]
  - SWELLING [None]
  - PRURITUS [None]
  - SPUTUM DISCOLOURED [None]
  - DYSPNOEA [None]
  - RASH PUSTULAR [None]
  - BRONCHITIS [None]
  - FATIGUE [None]
